FAERS Safety Report 14309444 (Version 1)
Quarter: 2017Q4

REPORT INFORMATION
  Report Type: Spontaneous
  Country: PL (occurrence: PL)
  Receive Date: 20171220
  Receipt Date: 20171220
  Transmission Date: 20180321
  Serious: Yes (Other)
  Sender: FDA-Public Use
  Company Number: PL-TEVA-2017-PL-837920

PATIENT
  Age: 57 Year
  Sex: Female

DRUGS (3)
  1. EUTHYROX 88 TABLETTEN 88MICROGRAM [Concomitant]
     Active Substance: LEVOTHYROXINE SODIUM
     Route: 065
  2. QUETIAPINE. [Suspect]
     Active Substance: QUETIAPINE
     Dosage: UNKNOWN DOSE AND FREQUENCY
     Route: 048
  3. KVETIAX SR [Suspect]
     Active Substance: QUETIAPINE
     Dosage: 50 MG PER DAY
     Route: 065

REACTIONS (2)
  - Injury [Unknown]
  - Dysphagia [Unknown]
